FAERS Safety Report 15547402 (Version 2)
Quarter: 2019Q2

REPORT INFORMATION
  Report Type: Report from Study
  Country: US (occurrence: US)
  Receive Date: 20181024
  Receipt Date: 20190612
  Transmission Date: 20190711
  Serious: Yes (Other)
  Sender: FDA-Public Use
  Company Number: US-JNJFOC-20180824234

PATIENT
  Age: 56 Year
  Sex: Female
  Weight: 54.43 kg

DRUGS (2)
  1. STELARA [Suspect]
     Active Substance: USTEKINUMAB
     Indication: CROHN^S DISEASE
     Route: 058
     Dates: start: 201703
  2. NALTREXONE [Concomitant]
     Active Substance: NALTREXONE
     Indication: INFLAMMATION
     Route: 065
     Dates: start: 2016

REACTIONS (5)
  - Abscess oral [Not Recovered/Not Resolved]
  - Gingival abscess [Recovered/Resolved]
  - Herpes zoster [Recovering/Resolving]
  - Hepatic enzyme increased [Not Recovered/Not Resolved]
  - Inappropriate schedule of product administration [Unknown]

NARRATIVE: CASE EVENT DATE: 2018
